FAERS Safety Report 11882015 (Version 2)
Quarter: 2016Q1

REPORT INFORMATION
  Report Type: Report from Study
  Country: US (occurrence: US)
  Receive Date: 20151231
  Receipt Date: 20160219
  Transmission Date: 20160526
  Serious: Yes (Other)
  Sender: FDA-Public Use
  Company Number: US-JNJFOC-20151224573

PATIENT
  Sex: Female

DRUGS (1)
  1. INVOKANA [Suspect]
     Active Substance: CANAGLIFLOZIN
     Indication: TYPE 2 DIABETES MELLITUS
     Route: 048

REACTIONS (7)
  - Asthenia [Unknown]
  - Loss of consciousness [Recovered/Resolved]
  - Head injury [Recovered/Resolved]
  - Cold sweat [Unknown]
  - Headache [Unknown]
  - Thinking abnormal [Unknown]
  - Blood glucose decreased [Unknown]
